FAERS Safety Report 6716279-7 (Version None)
Quarter: 2010Q2

REPORT INFORMATION
  Report Type: 
  Country: None (occurrence: None)
  Receive Date: 20100507
  Receipt Date: 20100430
  Transmission Date: 20101027
  Serious: Yes (Other)
  Sender: FDA-Public Use
  Company Number: CH-ABBOTT-10P-151-0636854-00

PATIENT
  Age: 39 Year
  Sex: Male

DRUGS (12)
  1. NORVIR [Suspect]
     Indication: HIV INFECTION
     Dosage: (BOOSTER)
     Route: 048
     Dates: start: 20070101, end: 20091101
  2. NORVIR [Suspect]
     Route: 048
     Dates: start: 20091209, end: 20091229
  3. NORVIR [Suspect]
     Route: 048
     Dates: start: 20100107, end: 20100112
  4. EMTRICITABINE W/TENOFOVIR [Suspect]
     Indication: HIV INFECTION
     Route: 048
     Dates: start: 20070101, end: 20091101
  5. EMTRICITABINE W/TENOFOVIR [Suspect]
     Route: 048
     Dates: start: 20091209, end: 20091229
  6. EMTRICITABINE W/TENOFOVIR [Suspect]
     Route: 048
     Dates: start: 20091209, end: 20091229
  7. EMTRICITABINE W/TENOFOVIR [Suspect]
     Dates: start: 20100107, end: 20100112
  8. EMTRICITABINE W/TENOFOVIR [Suspect]
     Route: 048
     Dates: start: 20100208
  9. ATAZANAVIR [Suspect]
     Indication: HIV INFECTION
     Route: 048
     Dates: start: 20070101, end: 20091101
  10. ATAZANAVIR [Suspect]
     Route: 048
     Dates: start: 20091209, end: 20091229
  11. ATAZANAVIR [Suspect]
     Route: 048
     Dates: start: 20100107, end: 20100112
  12. ETRAVIRINE [Concomitant]
     Indication: HIV INFECTION
     Dates: start: 20100208

REACTIONS (6)
  - CELL DEATH [None]
  - CHOLESTASIS [None]
  - CHROMATURIA [None]
  - HEPATITIS C [None]
  - JAUNDICE [None]
  - LIVER INJURY [None]
